FAERS Safety Report 4969753-8 (Version None)
Quarter: 2006Q2

REPORT INFORMATION
  Report Type: 
  Country: None (occurrence: None)
  Receive Date: 20060411
  Receipt Date: 20050406
  Transmission Date: 20061013
  Serious: Yes (Hospitalization)
  Sender: FDA-Public Use
  Company Number: US-MERCK-0504USA01072

PATIENT
  Age: 81 Year
  Sex: Female
  Weight: 69 kg

DRUGS (3)
  1. VIOXX [Suspect]
     Indication: OSTEOARTHRITIS
     Route: 048
     Dates: start: 20000915, end: 20001101
  2. VIOXX [Suspect]
     Route: 048
     Dates: start: 20011029, end: 20040930
  3. ASPIRIN [Concomitant]
     Route: 048

REACTIONS (6)
  - BURSITIS [None]
  - CEREBRAL ARTERY OCCLUSION [None]
  - DRUG INEFFECTIVE [None]
  - EYELID BLEEDING [None]
  - LUMBAR SPINAL STENOSIS [None]
  - VERTIGO [None]
